FAERS Safety Report 16416086 (Version 2)
Quarter: 2019Q4

REPORT INFORMATION
  Report Type: Report from Study
  Country: US (occurrence: US)
  Receive Date: 20190611
  Receipt Date: 20191114
  Transmission Date: 20200122
  Serious: Yes (Hospitalization)
  Sender: FDA-Public Use
  Company Number: US-JNJFOC-20190612678

PATIENT
  Sex: Male

DRUGS (13)
  1. ATENOLOL. [Concomitant]
     Active Substance: ATENOLOL
  2. MAGNESIUM [Concomitant]
     Active Substance: MAGNESIUM
  3. JANUVIA [Concomitant]
     Active Substance: SITAGLIPTIN PHOSPHATE
  4. RANEXA [Concomitant]
     Active Substance: RANOLAZINE
  5. IMBRUVICA [Suspect]
     Active Substance: IBRUTINIB
     Indication: CHRONIC LYMPHOCYTIC LEUKAEMIA
     Route: 048
     Dates: start: 20170726, end: 20180515
  6. VITAMIN C [Concomitant]
     Active Substance: ASCORBIC ACID
  7. FLONASE [Concomitant]
     Active Substance: FLUTICASONE PROPIONATE
  8. ATORVASTATIN CALCIUM. [Concomitant]
     Active Substance: ATORVASTATIN CALCIUM
  9. LOSARTAN POTASSIUM. [Concomitant]
     Active Substance: LOSARTAN POTASSIUM
  10. HYDROCHLOROTHIAZIDE. [Concomitant]
     Active Substance: HYDROCHLOROTHIAZIDE
  11. IMBRUVICA [Suspect]
     Active Substance: IBRUTINIB
     Indication: CHRONIC LYMPHOCYTIC LEUKAEMIA
     Route: 048
     Dates: start: 20180516
  12. FLOMAX [Concomitant]
     Active Substance: TAMSULOSIN HYDROCHLORIDE
  13. PIOGLITAZONE HCL [Concomitant]
     Active Substance: PIOGLITAZONE

REACTIONS (8)
  - Muscular weakness [Unknown]
  - Pain [Unknown]
  - Muscle spasms [Unknown]
  - Peripheral swelling [Unknown]
  - Weight increased [Unknown]
  - Fatigue [Unknown]
  - Pain in extremity [Unknown]
  - Joint swelling [Unknown]

NARRATIVE: CASE EVENT DATE: 2019
